FAERS Safety Report 24156558 (Version 2)
Quarter: 2024Q3

REPORT INFORMATION
  Report Type: Spontaneous
  Country: DE (occurrence: DE)
  Receive Date: 20240731
  Receipt Date: 20240831
  Transmission Date: 20241017
  Serious: Yes (Life-Threatening, Hospitalization, Other)
  Sender: AUROBINDO
  Company Number: DE-ROCHE-10000014368

PATIENT
  Age: 75 Year
  Sex: Male
  Weight: 76 kg

DRUGS (10)
  1. DOCETAXEL [Suspect]
     Active Substance: DOCETAXEL\DOCETAXEL ANHYDROUS
     Indication: Oesophageal adenocarcinoma
     Dosage: 50 MILLIGRAM/SQ. METER, ONCE IN 2 WEEKS (LAST DOSE GIVEN BEFORE AE ONSET ON 24/JUN/2024DOSE GIVEN BE
     Route: 042
     Dates: start: 20240610
  2. DOCETAXEL [Suspect]
     Active Substance: DOCETAXEL\DOCETAXEL ANHYDROUS
     Dosage: 96 MILLIGRAM/SQ. METER, 2 WEEK (LAST DOSE GIVEN BEFORE AE ONSET ON 24/JUN/2024)
     Route: 042
  3. OXALIPLATIN [Suspect]
     Active Substance: OXALIPLATIN
     Indication: Oesophageal adenocarcinoma
     Dosage: 85 MILLIGRAM/SQ. METER, ONCE IN 2 WEEKS (LAST DOSE GIVEN BEFORE AE ONSET ON 24/JUN/2024DOSE GIVEN BE
     Route: 042
     Dates: start: 20240610
  4. OXALIPLATIN [Suspect]
     Active Substance: OXALIPLATIN
     Dosage: 160 MILLIGRAM/SQ. METER, 2 WEEK (LAST DOSE GIVEN BEFORE AE ONSET ON 24/JUN/2024)
     Route: 042
  5. ATEZOLIZUMAB [Suspect]
     Active Substance: ATEZOLIZUMAB
     Indication: Oesophageal adenocarcinoma
     Dosage: 840 MILLIGRAM, ONCE IN 3 WEEKS (LAST DOSE GIVEN BEFORE AE ONSET ON 24/JUN/2024DOSE GIVEN BEFORE ONSE
     Route: 042
     Dates: start: 20240610
  6. FLUOROURACIL [Suspect]
     Active Substance: FLUOROURACIL
     Indication: Oesophageal adenocarcinoma
     Dosage: 2600 MILLIGRAM/SQ. METER, ONCE IN 2 WEEKS (LAST DOSE GIVEN BEFORE AE ONSET ON 24/JUN/2024DOSE GIVEN
     Route: 042
     Dates: start: 20240610
  7. FLUOROURACIL [Suspect]
     Active Substance: FLUOROURACIL
     Dosage: 5000 MILLIGRAM/SQ. METER, 2 WEEK (LAST DOSE GIVEN BEFORE AE ONSET ON 24/JUN/2024)
     Route: 042
  8. LEUCOVORIN [Suspect]
     Active Substance: LEUCOVORIN\LEUCOVORIN CALCIUM
     Indication: Oesophageal adenocarcinoma
     Dosage: 200 MILLIGRAM/SQ. METER, ONCE IN 2 WEEKS (LAST DOSE GIVEN BEFORE AE ONSET ON 24/JUN/2024DOSE GIVEN B
     Route: 042
     Dates: start: 20240610
  9. LEUCOVORIN [Suspect]
     Active Substance: LEUCOVORIN\LEUCOVORIN CALCIUM
     Dosage: 380 MILLIGRAM/SQ. METER, 2 WEEK (LAST DOSE GIVEN BEFORE AE ONSET ON 24/JUN/2024)
     Route: 042
  10. PIPERACILLIN [Concomitant]
     Active Substance: PIPERACILLIN
     Indication: Product used for unknown indication
     Dosage: UNK
     Route: 065

REACTIONS (1)
  - Pyelonephritis [Recovered/Resolved]

NARRATIVE: CASE EVENT DATE: 20240628
